FAERS Safety Report 9046932 (Version 1)
Quarter: 2013Q1

REPORT INFORMATION
  Report Type: Spontaneous
  Country: US (occurrence: None)
  Receive Date: 20130129
  Receipt Date: 20130129
  Transmission Date: 20140127
  Serious: Yes (Hospitalization)
  Sender: FDA-Public Use
  Company Number: None

PATIENT
  Age: 84 Year
  Sex: Female
  Weight: 72.6 kg

DRUGS (1)
  1. XARELTO? [Suspect]
     Route: 048
     Dates: start: 20130122, end: 20130124

REACTIONS (1)
  - Procedural haemorrhage [None]
